FAERS Safety Report 8320846-7 (Version None)
Quarter: 2012Q2

REPORT INFORMATION
  Report Type: 
  Country: None (occurrence: None)
  Receive Date: 20120430
  Receipt Date: 20120423
  Transmission Date: 20120825
  Serious: Yes (Other)
  Sender: FDA-Public Use
  Company Number: PHHY2012AR031185

PATIENT
  Sex: Female

DRUGS (3)
  1. LEVOTHYROXINE SODIUM [Concomitant]
     Indication: HYPOTHYROIDISM
     Dosage: 150 UG, UNK
     Dates: start: 20060911
  2. PANTOPRAZOLE [Concomitant]
     Indication: GASTRITIS
     Dosage: 200 MG, DAILY
     Dates: start: 20060911
  3. GLEEVEC [Suspect]
     Indication: CHRONIC MYELOID LEUKAEMIA
     Dosage: 400 MG, DAILY
     Route: 048
     Dates: start: 20060509

REACTIONS (6)
  - CEREBRAL ISCHAEMIA [None]
  - MULTIPLE INJURIES [None]
  - HEADACHE [None]
  - PLATELET COUNT INCREASED [None]
  - DEMYELINATION [None]
  - DIARRHOEA [None]
